FAERS Safety Report 6740473-2 (Version None)
Quarter: 2010Q2

REPORT INFORMATION
  Report Type: 
  Country: None (occurrence: None)
  Receive Date: 20100525
  Receipt Date: 20100518
  Transmission Date: 20101027
  Serious: Yes (Disabling, Other)
  Sender: FDA-Public Use
  Company Number: PHHY2010FR29857

PATIENT
  Sex: Female

DRUGS (3)
  1. VOLTAREN [Suspect]
     Indication: TOOTHACHE
     Dosage: 1 DF, QD
     Dates: start: 20100209
  2. ANTIBIOTICS [Concomitant]
     Indication: TOOTH ABSCESS
  3. CILEST [Concomitant]
     Indication: CONTRACEPTION

REACTIONS (4)
  - INJECTION SITE HAEMATOMA [None]
  - INJECTION SITE INDURATION [None]
  - INJECTION SITE NECROSIS [None]
  - INJECTION SITE PAIN [None]
